FAERS Safety Report 6076920-1 (Version None)
Quarter: 2009Q1

REPORT INFORMATION
  Report Type: 
  Country: None (occurrence: None)
  Receive Date: 20090212
  Receipt Date: 20090212
  Transmission Date: 20090719
  Serious: Yes (Other)
  Sender: FDA-Public Use
  Company Number: None

PATIENT
  Sex: Female
  Weight: 90.7194 kg

DRUGS (2)
  1. BAYER BAYER WITH HEART ASPIRIN ADVANTAGE [Suspect]
     Indication: BLOOD CHOLESTEROL
     Dosage: 1 1
     Dates: start: 20090210, end: 20090210
  2. BAYER WITH ASPIRIN ADVANTAGE [Suspect]

REACTIONS (3)
  - ABNORMAL FAECES [None]
  - DIARRHOEA [None]
  - RECTAL HAEMORRHAGE [None]
